FAERS Safety Report 23073215 (Version 1)
Quarter: 2023Q4

REPORT INFORMATION
  Report Type: Spontaneous
  Country: CN (occurrence: CN)
  Receive Date: 20231017
  Receipt Date: 20231017
  Transmission Date: 20240110
  Serious: Yes (Death, Hospitalization, Other)
  Sender: FDA-Public Use
  Company Number: CN-SANDOZ-SDZ2023CN041207

PATIENT
  Age: 65 Year
  Sex: Female

DRUGS (2)
  1. CEFTRIAXONE [Suspect]
     Active Substance: CEFTRIAXONE\CEFTRIAXONE SODIUM
     Indication: Osteomyelitis
     Dosage: 2 G, QD
     Route: 065
  2. DAPTOMYCIN [Concomitant]
     Active Substance: DAPTOMYCIN
     Indication: Product used for unknown indication
     Dosage: 8 MG/KG, QD
     Route: 065

REACTIONS (4)
  - Haemolytic anaemia [Fatal]
  - Acute respiratory failure [Unknown]
  - Disseminated intravascular coagulation [Unknown]
  - Shock [Unknown]
